FAERS Safety Report 5622099-7 (Version None)
Quarter: 2008Q1

REPORT INFORMATION
  Report Type: 
  Country: None (occurrence: None)
  Receive Date: 20080204
  Receipt Date: 20080129
  Transmission Date: 20080703
  Serious: Yes (Other)
  Sender: FDA-Public Use
  Company Number: WAES 0711FRA00053

PATIENT
  Age: 44 Year
  Sex: Male

DRUGS (11)
  1. TAB MK-0518 [Suspect]
     Indication: HIV INFECTION
     Dosage: 400 MG/BID PO
     Route: 048
     Dates: start: 20070724
  2. AMOROLFINE [Concomitant]
  3. ASCORBIC ACID [Concomitant]
  4. DIDANOSINE [Concomitant]
  5. EMTRICITABINE (+) TENOFOVIR DISOPROXIL F [Concomitant]
  6. FOSAMPRENAVIR CALCIUM [Concomitant]
  7. LOPERAMIDE HCL [Concomitant]
  8. PRAZEPAM [Concomitant]
  9. RITONAVIR [Concomitant]
  10. TERBINAFINE HCL [Concomitant]
  11. ZOLPIDEM TARTRATE [Concomitant]

REACTIONS (2)
  - BLOOD ALKALINE PHOSPHATASE INCREASED [None]
  - INJECTION SITE ABSCESS [None]
